FAERS Safety Report 9499374 (Version 1)
Quarter: 2013Q3

REPORT INFORMATION
  Report Type: Spontaneous
  Country: CA (occurrence: CA)
  Receive Date: 20130905
  Receipt Date: 20130905
  Transmission Date: 20140515
  Serious: Yes (Other)
  Sender: FDA-Public Use
  Company Number: CA-ROCHE-1270515

PATIENT
  Age: 50 Year
  Sex: Female

DRUGS (8)
  1. XELODA [Suspect]
     Indication: PRODUCT USED FOR UNKNOWN INDICATION
     Route: 065
  2. TYKERB [Suspect]
     Indication: PRODUCT USED FOR UNKNOWN INDICATION
     Route: 048
  3. DILAUDID [Concomitant]
  4. EFFEXOR XR [Concomitant]
     Route: 065
  5. IMODIUM [Concomitant]
  6. LYRICA [Concomitant]
     Route: 065
  7. SENOKOT [Concomitant]
  8. TYLENOL [Concomitant]

REACTIONS (2)
  - Breast cancer metastatic [Not Recovered/Not Resolved]
  - Neoplasm progression [Not Recovered/Not Resolved]
